FAERS Safety Report 23146555 (Version 1)
Quarter: 2023Q4

REPORT INFORMATION
  Report Type: Spontaneous
  Country: DE (occurrence: DE)
  Receive Date: 20231105
  Receipt Date: 20231105
  Transmission Date: 20240110
  Serious: Yes (Other)
  Sender: FDA-Public Use
  Company Number: DE-EPICPHARMA-DE-2023EPCLIT01641

PATIENT
  Sex: Female
  Weight: 1.46 kg

DRUGS (3)
  1. CARBOPLATIN [Suspect]
     Active Substance: CARBOPLATIN
     Indication: Foetal exposure during pregnancy
     Route: 064
  2. PACLITAXEL [Concomitant]
     Active Substance: PACLITAXEL
     Indication: Foetal exposure during pregnancy
     Route: 064
  3. BETAMETHASONE [Concomitant]
     Active Substance: BETAMETHASONE
     Indication: Foetal exposure during pregnancy
     Route: 064

REACTIONS (3)
  - Foetal growth restriction [Unknown]
  - Patent ductus arteriosus [Unknown]
  - Foetal exposure during pregnancy [Unknown]
